FAERS Safety Report 4514376-8 (Version None)
Quarter: 2004Q4

REPORT INFORMATION
  Report Type: 
  Country: None (occurrence: None)
  Receive Date: 20041124
  Receipt Date: 20041105
  Transmission Date: 20050328
  Serious: Yes (Hospitalization)
  Sender: FDA-Public Use
  Company Number: FR_040904890

PATIENT
  Age: 89 Year
  Sex: Female

DRUGS (4)
  1. ZYPREXA [Suspect]
  2. XANAX (ALPRAZOLAM DUM) [Concomitant]
  3. MOPRAL (OMEPRAZOLE RATIOPHARM) [Concomitant]
  4. EFFEXOR [Concomitant]

REACTIONS (9)
  - ANAEMIA [None]
  - CONFUSIONAL STATE [None]
  - HYPERCAPNIA [None]
  - LUNG DISORDER [None]
  - MALNUTRITION [None]
  - MENTAL DISORDER [None]
  - RALES [None]
  - SOMNOLENCE [None]
  - SUPERINFECTION LUNG [None]
